FAERS Safety Report 18966255 (Version 1)
Quarter: 2021Q1

REPORT INFORMATION
  Report Type: Report from Study
  Country: US (occurrence: US)
  Receive Date: 20210303
  Receipt Date: 20210303
  Transmission Date: 20210420
  Serious: Yes (Death)
  Sender: FDA-Public Use
  Company Number: US-TAIHO ONCOLOGY  INC-EU-2021-00629

PATIENT
  Age: 66 Year
  Sex: Male

DRUGS (4)
  1. LONSURF [Suspect]
     Active Substance: TIPIRACIL HYDROCHLORIDE\TRIFLURIDINE
     Indication: RECTAL CANCER
     Dosage: CURRENT CYCLE UNKNOWN
     Route: 048
     Dates: start: 20200509
  2. ALOGLIPTIN. [Concomitant]
     Active Substance: ALOGLIPTIN
  3. JANUVIA [Concomitant]
     Active Substance: SITAGLIPTIN PHOSPHATE
  4. FISH OIL [Concomitant]
     Active Substance: FISH OIL

REACTIONS (1)
  - Death [Fatal]

NARRATIVE: CASE EVENT DATE: 202102
